FAERS Safety Report 9105996 (Version 1)
Quarter: 2013Q1

REPORT INFORMATION
  Report Type: Spontaneous
  Country: US (occurrence: US)
  Receive Date: 20130220
  Receipt Date: 20130220
  Transmission Date: 20140127
  Serious: Yes (Other)
  Sender: FDA-Public Use
  Company Number: US-PFIZER INC-2013060621

PATIENT
  Age: 74 Year
  Sex: Male
  Weight: 77.1 kg

DRUGS (6)
  1. SONATA [Suspect]
     Indication: INSOMNIA
     Dosage: 10 MG, 1X/DAY
     Route: 048
     Dates: start: 201212
  2. LIPITOR [Concomitant]
     Indication: BLOOD CHOLESTEROL INCREASED
     Dosage: UNK
     Route: 048
  3. ZOLOFT [Concomitant]
     Indication: HORMONE LEVEL ABNORMAL
     Dosage: UNK
     Route: 048
  4. FINASTERIDE [Concomitant]
     Indication: HAIR GROWTH ABNORMAL
     Dosage: UNK
     Route: 048
  5. FLOMAX [Concomitant]
     Indication: BENIGN PROSTATIC HYPERPLASIA
     Dosage: UNK
     Route: 048
  6. CALCIUM [Concomitant]
     Indication: SUPPLEMENTATION THERAPY
     Dosage: UNK
     Route: 048

REACTIONS (3)
  - Dry eye [Not Recovered/Not Resolved]
  - Eye pain [Not Recovered/Not Resolved]
  - Eye infection [Not Recovered/Not Resolved]
